FAERS Safety Report 19749475 (Version 1)
Quarter: 2021Q3

REPORT INFORMATION
  Report Type: Spontaneous
  Country: DK (occurrence: DK)
  Receive Date: 20210826
  Receipt Date: 20210826
  Transmission Date: 20211014
  Serious: Yes (Hospitalization, Disabling)
  Sender: FDA-Public Use
  Company Number: NVSC2021DK190950

PATIENT
  Age: 80 Year
  Sex: Female
  Weight: 100 kg

DRUGS (6)
  1. ELTROXIN [Concomitant]
     Active Substance: LEVOTHYROXINE
     Indication: MYXOEDEMA
     Dosage: UNK
     Route: 065
     Dates: start: 20140527
  2. ELIQUIS [Concomitant]
     Active Substance: APIXABAN
     Indication: ATRIAL FIBRILLATION
     Dosage: UNK
     Route: 065
     Dates: start: 20191129
  3. ACLASTA [Suspect]
     Active Substance: ZOLEDRONIC ACID
     Indication: OSTEOPOROSIS
     Dosage: 100 ML, Q12MO
     Route: 042
     Dates: start: 20190529
  4. SPIRIX [Concomitant]
     Active Substance: SPIRONOLACTONE
     Indication: DIURETIC THERAPY
     Dosage: UNK
     Route: 065
     Dates: start: 20170303
  5. METOPROLOLSUCCINAT HEXAL [Concomitant]
     Active Substance: METOPROLOL SUCCINATE
     Indication: HYPERTENSION
     Dosage: UNK
     Route: 065
     Dates: start: 20191023
  6. ANCOZAN [Concomitant]
     Active Substance: LOSARTAN POTASSIUM
     Indication: HYPERTENSION
     Dosage: UNK
     Route: 065
     Dates: start: 20191026

REACTIONS (2)
  - Stress fracture [Not Recovered/Not Resolved]
  - Arthralgia [Unknown]

NARRATIVE: CASE EVENT DATE: 20210618
